FAERS Safety Report 4806096-7 (Version None)
Quarter: 2005Q4

REPORT INFORMATION
  Report Type: 
  Country: None (occurrence: None)
  Receive Date: 20051021
  Receipt Date: 20051012
  Transmission Date: 20060501
  Serious: Yes (Hospitalization)
  Sender: FDA-Public Use
  Company Number: FR-ROCHE-420824

PATIENT
  Age: 91 Year
  Sex: Male

DRUGS (4)
  1. ROCEPHIN [Suspect]
     Route: 030
     Dates: start: 20050823, end: 20050826
  2. HALDOL [Suspect]
     Indication: SENILE DEMENTIA
     Route: 048
     Dates: end: 20050830
  3. CYANOCOBALAMINE [Concomitant]
     Route: 048
  4. BIONOLYTE [Concomitant]
     Route: 042
     Dates: start: 20050823

REACTIONS (1)
  - TOXIC SKIN ERUPTION [None]
